FAERS Safety Report 21756847 (Version 1)
Quarter: 2022Q4

REPORT INFORMATION
  Report Type: Spontaneous
  Country: US (occurrence: None)
  Receive Date: 20221220
  Receipt Date: 20221220
  Transmission Date: 20230113
  Serious: No
  Sender: FDA-Public Use
  Company Number: 2022A385186

PATIENT
  Age: 70 Year
  Sex: Female
  Weight: 71.7 kg

DRUGS (1)
  1. IMFINZI [Suspect]
     Active Substance: DURVALUMAB
     Indication: Lung neoplasm malignant
     Dosage: UNKNOWN
     Route: 042
     Dates: start: 20221004

REACTIONS (10)
  - Eye disorder [Recovering/Resolving]
  - Eye discharge [Recovering/Resolving]
  - Glassy eyes [Recovering/Resolving]
  - Breast pain [Not Recovered/Not Resolved]
  - Pain in extremity [Not Recovered/Not Resolved]
  - Arthralgia [Not Recovered/Not Resolved]
  - Axillary pain [Not Recovered/Not Resolved]
  - Groin pain [Not Recovered/Not Resolved]
  - Pain [Not Recovered/Not Resolved]
  - Lymph node pain [Not Recovered/Not Resolved]

NARRATIVE: CASE EVENT DATE: 20220101
